FAERS Safety Report 15602036 (Version 6)
Quarter: 2019Q4

REPORT INFORMATION
  Report Type: Report from Study
  Country: JP (occurrence: JP)
  Receive Date: 20181109
  Receipt Date: 20191221
  Transmission Date: 20200122
  Serious: Yes (Other)
  Sender: FDA-Public Use
  Company Number: JP-ACTELION-A-CH2018-181515

PATIENT
  Age: 70 Year
  Sex: Female
  Weight: 44 kg

DRUGS (18)
  1. PIMOBENDAN [Concomitant]
     Active Substance: PIMOBENDAN
     Indication: CARDIAC FAILURE CHRONIC
     Dosage: 2.5 MG, QD
     Dates: start: 20180625
  2. CEFOTIAM [Concomitant]
     Active Substance: CEFOTIAM
     Dosage: 500 MG, QD
     Dates: start: 20180614, end: 20180625
  3. BELSOMRA [Concomitant]
     Active Substance: SUVOREXANT
     Dosage: 15 MG, QD
     Dates: start: 20180616, end: 20180813
  4. FERROMIA [Concomitant]
     Active Substance: SODIUM FERROUS CITRATE
     Indication: IRON DEFICIENCY ANAEMIA
     Dosage: 200 MG, QD
     Dates: start: 20180620, end: 20180831
  5. CARVEDILOL. [Concomitant]
     Active Substance: CARVEDILOL
     Indication: CARDIAC FAILURE CHRONIC
     Dosage: 25 MG, QD
     Dates: start: 20180624, end: 20180831
  6. UPTRAVI [Suspect]
     Active Substance: SELEXIPAG
     Indication: PULMONARY ARTERIAL HYPERTENSION
     Dosage: 0.4 MG, BID
     Route: 048
     Dates: start: 20180628, end: 20180628
  7. UPTRAVI [Suspect]
     Active Substance: SELEXIPAG
     Dosage: 0.2 MG, BID
     Route: 048
     Dates: start: 20180629, end: 20180706
  8. OPSUMIT [Concomitant]
     Active Substance: MACITENTAN
     Indication: PULMONARY ARTERIAL HYPERTENSION
     Dosage: 10 MG, QD
     Route: 048
     Dates: start: 20180618, end: 20180831
  9. MILRILA [Concomitant]
     Active Substance: MILRINONE
     Indication: CARDIAC FAILURE CHRONIC
     Dosage: 20 MG, QD
     Dates: start: 20180611, end: 20180625
  10. WARFARIN [Concomitant]
     Active Substance: WARFARIN
     Dosage: 2 MG, QD
     Dates: start: 20180617
  11. SAMSCA [Concomitant]
     Active Substance: TOLVAPTAN
     Indication: CARDIAC FAILURE CHRONIC
     Dosage: 25 MG, QD
     Dates: start: 20180626, end: 20180831
  12. FLOLAN [Concomitant]
     Active Substance: EPOPROSTENOL SODIUM
     Indication: PULMONARY ARTERIAL HYPERTENSION
     Dosage: 0.5 MG, QD
     Dates: start: 20180613, end: 20180626
  13. BISONO [Suspect]
     Active Substance: BISOPROLOL
     Indication: CARDIAC FAILURE CHRONIC
     Dosage: 4 MG, QD
     Route: 062
     Dates: start: 20180620, end: 20180621
  14. NORADRENALINE [Concomitant]
     Active Substance: NOREPINEPHRINE
     Indication: HYPOTENSION
     Dosage: 5 MG, QD
     Dates: start: 20180621, end: 20180625
  15. LASIX [Concomitant]
     Active Substance: FUROSEMIDE
     Indication: CARDIAC FAILURE
     Dosage: 40 MG, QD
     Dates: start: 20180628, end: 20180628
  16. LANSOPRAZOLE. [Concomitant]
     Active Substance: LANSOPRAZOLE
     Dosage: 15 MG, QD
     Dates: start: 20180615, end: 20180831
  17. SODIUM BICARBONATE. [Concomitant]
     Active Substance: SODIUM BICARBONATE
     Indication: NEPHROSCLEROSIS
     Dosage: 4 G, QD
     Dates: start: 20180615, end: 20180831
  18. UPTRAVI [Suspect]
     Active Substance: SELEXIPAG
     Dosage: 0.2 MG, BID
     Route: 048
     Dates: start: 20180620, end: 20180627

REACTIONS (4)
  - Transfusion [Unknown]
  - Pulmonary congestion [Recovering/Resolving]
  - Hypotension [Recovered/Resolved]
  - Asthma [Recovering/Resolving]

NARRATIVE: CASE EVENT DATE: 20180621
